FAERS Safety Report 7717337-0 (Version None)
Quarter: 2011Q3

REPORT INFORMATION
  Report Type: 
  Country: None (occurrence: None)
  Receive Date: 20110830
  Receipt Date: 20110818
  Transmission Date: 20111222
  Serious: Yes (Hospitalization)
  Sender: FDA-Public Use
  Company Number: DE-JNJFOC-20100400516

PATIENT
  Age: 20 Year
  Sex: Female

DRUGS (6)
  1. ACETAMINOPHEN [Suspect]
     Route: 048
  2. IBUPROFEN [Suspect]
     Indication: ILL-DEFINED DISORDER
     Route: 048
     Dates: start: 20100328, end: 20100328
  3. INDOMETHACIN [Suspect]
     Indication: ILL-DEFINED DISORDER
     Route: 048
     Dates: start: 20100328, end: 20100328
  4. PANTOPRAZOLE [Suspect]
     Indication: ILL-DEFINED DISORDER
     Route: 048
     Dates: start: 20100328, end: 20100328
  5. ACETAMINOPHEN [Suspect]
     Indication: ILL-DEFINED DISORDER
     Route: 048
     Dates: start: 20100328, end: 20100328
  6. ALCOHOL [Suspect]
     Indication: ILL-DEFINED DISORDER

REACTIONS (3)
  - VOMITING [None]
  - SUICIDE ATTEMPT [None]
  - MULTIPLE DRUG OVERDOSE [None]
